FAERS Safety Report 10133513 (Version 2)
Quarter: 2014Q3

REPORT INFORMATION
  Report Type: Spontaneous
  Country: US (occurrence: US)
  Receive Date: 20140428
  Receipt Date: 20140721
  Transmission Date: 20150326
  Serious: Yes (Death, Hospitalization, Other)
  Sender: FDA-Public Use
  Company Number: US-GILEAD-2014-0100675

PATIENT
  Sex: Male

DRUGS (15)
  1. TEMAZEPAM. [Concomitant]
     Active Substance: TEMAZEPAM
  2. TRAMADOL [Concomitant]
     Active Substance: TRAMADOL
  3. HYDROCHLORIC ACID [Concomitant]
     Active Substance: HYDROCHLORIC ACID
  4. LETAIRIS [Suspect]
     Active Substance: AMBRISENTAN
     Indication: PORTOPULMONARY HYPERTENSION
     Dosage: 10 MG, QD
     Route: 065
     Dates: start: 20140324, end: 20140415
  5. LACTULOSE. [Concomitant]
     Active Substance: LACTULOSE
  6. PRILOSEC [Concomitant]
     Active Substance: OMEPRAZOLE MAGNESIUM
  7. POTASSIUM [Concomitant]
     Active Substance: POTASSIUM
  8. LASIX [Concomitant]
     Active Substance: FUROSEMIDE
  9. COREG [Concomitant]
     Active Substance: CARVEDILOL
  10. BUPROPION [Concomitant]
     Active Substance: BUPROPION
  11. XIFAXAN [Concomitant]
     Active Substance: RIFAXIMIN
  12. ADCIRCA [Concomitant]
     Active Substance: TADALAFIL
  13. DIGOXIN. [Concomitant]
     Active Substance: DIGOXIN
  14. TOPAMAX [Concomitant]
     Active Substance: TOPIRAMATE
  15. FOLIC ACID. [Concomitant]
     Active Substance: FOLIC ACID

REACTIONS (4)
  - Swelling [Unknown]
  - Localised infection [Unknown]
  - Death [Fatal]
  - Gangrene [Unknown]
